FAERS Safety Report 8246899-2 (Version None)
Quarter: 2012Q1

REPORT INFORMATION
  Report Type: 
  Country: None (occurrence: None)
  Receive Date: 20120330
  Receipt Date: 20120322
  Transmission Date: 20120608
  Serious: Yes (Hospitalization)
  Sender: FDA-Public Use
  Company Number: US-ABBOTT-12P-163-0918063-00

PATIENT
  Age: 49 Year
  Sex: Male

DRUGS (18)
  1. REMERON [Concomitant]
     Indication: INSOMNIA
  2. PRILOSEC [Concomitant]
     Indication: GASTROOESOPHAGEAL REFLUX DISEASE
  3. ENTOCORT EC [Concomitant]
     Indication: PRODUCT USED FOR UNKNOWN INDICATION
  4. CELEBREX [Concomitant]
     Indication: ARTHRITIS
  5. HYDROXYZINE PAM [Concomitant]
     Indication: DEPRESSION
     Dosage: TWO X 250MG IN DAY, TWO X 250MG HS
  6. MORPHINE [Concomitant]
     Indication: PAIN
  7. HUMIRA [Suspect]
     Indication: CROHN'S DISEASE
     Dosage: LOADING DOSE 4 PENS IN ONE DAY
     Dates: start: 20120312, end: 20120312
  8. SYNTHROID [Concomitant]
     Indication: THYROID DISORDER
  9. PRISTIQ [Concomitant]
     Indication: DEPRESSION
  10. HUMIRA [Suspect]
     Dates: start: 20120312
  11. SEROQUEL [Concomitant]
     Indication: INSOMNIA
  12. DILAUDID [Concomitant]
     Indication: ARTHRALGIA
  13. MECLIZINE [Concomitant]
     Indication: PRODUCT USED FOR UNKNOWN INDICATION
  14. HYTRIN [Concomitant]
     Indication: INSOMNIA
  15. FLEXERIL [Concomitant]
     Indication: PAIN
  16. ENTOCORT EC [Concomitant]
  17. PROCARDIA XL [Concomitant]
  18. PROCARDIA XL [Concomitant]
     Indication: HYPERTENSION

REACTIONS (7)
  - CROHN'S DISEASE [None]
  - GASTROINTESTINAL HAEMORRHAGE [None]
  - DIZZINESS [None]
  - HYPERTENSION [None]
  - FALL [None]
  - HAEMOGLOBIN ABNORMAL [None]
  - SMALL INTESTINE ULCER [None]
